FAERS Safety Report 5625109-6 (Version None)
Quarter: 2008Q1

REPORT INFORMATION
  Report Type: 
  Country: None (occurrence: None)
  Receive Date: 20080213
  Receipt Date: 20061215
  Transmission Date: 20080703
  Serious: No
  Sender: FDA-Public Use
  Company Number: US-BOEHRINGER INGELHEIM GMBH, GERMANY-2006-BP-14681BP

PATIENT
  Sex: Female

DRUGS (1)
  1. MELOXICAM [Suspect]
     Indication: RHEUMATOID ARTHRITIS
     Route: 048
     Dates: start: 20061001, end: 20061101

REACTIONS (2)
  - DRUG EFFECT DECREASED [None]
  - PAIN [None]
